FAERS Safety Report 5510858-0 (Version None)
Quarter: 2007Q4

REPORT INFORMATION
  Report Type: 
  Country: None (occurrence: None)
  Receive Date: 20071107
  Receipt Date: 20071030
  Transmission Date: 20080405
  Serious: Yes (Other)
  Sender: FDA-Public Use
  Company Number: 2007SP022053

PATIENT
  Age: 46 Year
  Sex: Female

DRUGS (2)
  1. PEG-INTRON [Suspect]
     Indication: HEPATITIS C
     Dosage: QW
     Dates: start: 20030101, end: 20030101
  2. REBETOL [Suspect]
     Indication: HEPATITIS C
     Dosage: PO
     Route: 048
     Dates: start: 20030101, end: 20030101

REACTIONS (4)
  - ANAEMIA [None]
  - DRUG INEFFECTIVE [None]
  - HEPATIC CIRRHOSIS [None]
  - WHITE BLOOD CELL COUNT DECREASED [None]
